FAERS Safety Report 10442256 (Version 2)
Quarter: 2014Q3

REPORT INFORMATION
  Report Type: Spontaneous
  Country: BR (occurrence: BR)
  Receive Date: 20140909
  Receipt Date: 20140915
  Transmission Date: 20150326
  Serious: Yes (Hospitalization)
  Sender: FDA-Public Use
  Company Number: BR-009507513-1409BRA003516

PATIENT
  Sex: Female
  Weight: 62 kg

DRUGS (3)
  1. NUVARING [Suspect]
     Active Substance: ETHINYL ESTRADIOL\ETONOGESTREL
     Indication: POLYCYSTIC OVARIES
     Dosage: UNK
     Route: 067
     Dates: start: 2007, end: 2010
  2. NUVARING [Suspect]
     Active Substance: ETHINYL ESTRADIOL\ETONOGESTREL
     Dosage: 3 WEEKS OF USE AND 1 WEEK OF PAUSE
     Route: 067
     Dates: start: 201405
  3. DIANE [Concomitant]
     Active Substance: CYPROTERONE ACETATE\ETHINYL ESTRADIOL
     Indication: CONTRACEPTION
     Dosage: UNK
     Dates: end: 2014

REACTIONS (9)
  - Road traffic accident [Unknown]
  - Device expulsion [Unknown]
  - Upper limb fracture [Unknown]
  - Vaginal discharge [Not Recovered/Not Resolved]
  - Off label use [Unknown]
  - Polycystic ovaries [Not Recovered/Not Resolved]
  - Vulvovaginal discomfort [Unknown]
  - Vaginal odour [Unknown]
  - Nausea [Recovering/Resolving]

NARRATIVE: CASE EVENT DATE: 2007
